FAERS Safety Report 5085707-8 (Version None)
Quarter: 2006Q3

REPORT INFORMATION
  Report Type: 
  Country: None (occurrence: None)
  Receive Date: 20060822
  Receipt Date: 20060811
  Transmission Date: 20061208
  Serious: Yes (Hospitalization)
  Sender: FDA-Public Use
  Company Number: US-ROCHE-459248

PATIENT
  Age: 50 Year
  Sex: Female
  Weight: 59 kg

DRUGS (2)
  1. PEG-INTERFERON ALFA 2A (RO 25-8310) [Suspect]
     Dosage: FORM REPORTED AS INJECTABLE SOLUTION.
     Route: 058
     Dates: start: 20050907, end: 20060407
  2. RIBAVIRIN [Suspect]
     Dosage: AT THE TIME OF THE EVENT THE PATIENT WAS RECEIVING 800 MG DAILY.
     Route: 048
     Dates: start: 20050907, end: 20060407

REACTIONS (1)
  - CONVULSION [None]
